FAERS Safety Report 5496154-9 (Version None)
Quarter: 2007Q4

REPORT INFORMATION
  Report Type: 
  Country: None (occurrence: None)
  Receive Date: 20071023
  Receipt Date: 20071023
  Transmission Date: 20080405
  Serious: No
  Sender: FDA-Public Use
  Company Number: None

PATIENT
  Sex: Male
  Weight: 117.9352 kg

DRUGS (3)
  1. VIAGRA [Suspect]
     Indication: ERECTILE DYSFUNCTION
     Dosage: 100 MG AS NEEDED PO
     Route: 048
     Dates: start: 20030220, end: 20040204
  2. PREDNISONE [Concomitant]
  3. VIOXX [Concomitant]

REACTIONS (6)
  - BALANCE DISORDER [None]
  - DEAFNESS UNILATERAL [None]
  - FALL [None]
  - TINNITUS [None]
  - VERTIGO [None]
  - WALKING AID USER [None]
